FAERS Safety Report 9719386 (Version 2)
Quarter: 2014Q1

REPORT INFORMATION
  Report Type: Spontaneous
  Country: US (occurrence: US)
  Receive Date: 20131128
  Receipt Date: 20140211
  Transmission Date: 20141002
  Serious: No
  Sender: FDA-Public Use
  Company Number: US-B.I. PHARMACEUTICALS,INC./RIDGEFIELD-2013-BI-38024BP

PATIENT
  Sex: Male
  Weight: 83 kg

DRUGS (5)
  1. PRADAXA [Suspect]
     Indication: CEREBROVASCULAR ACCIDENT PROPHYLAXIS
     Dosage: 300 MG
     Route: 048
     Dates: start: 201101
  2. PRADAXA [Suspect]
     Indication: ATRIAL FIBRILLATION
  3. ALPHAGAN P [Concomitant]
     Dosage: ROUTE: OD (RIGHT EYE); DOSE PER APPLICATION: 1 DROP; DAILY DOSE: 2 DROP
  4. LUMIGAN [Concomitant]
     Dosage: ROUT: OD (RIGHT EYE); DOSE PER APPLICATION: 1 DROP; DAILY DOSE: 1DROP
  5. PRED ACETATE 1% [Concomitant]
     Indication: IRITIS
     Dosage: ROUTE: OD (RIGHT EYE)

REACTIONS (1)
  - Visual acuity reduced [Not Recovered/Not Resolved]
